FAERS Safety Report 8532652-9 (Version None)
Quarter: 2012Q3

REPORT INFORMATION
  Report Type: 
  Country: None (occurrence: None)
  Receive Date: 20120724
  Receipt Date: 20120712
  Transmission Date: 20120928
  Serious: Yes (Other)
  Sender: FDA-Public Use
  Company Number: US-BAYER-2012-070898

PATIENT
  Age: 33 Year
  Sex: Female
  Weight: 77.3 kg

DRUGS (15)
  1. ALBUTEROL [Concomitant]
     Dosage: 17 MG, PRN
     Route: 048
  2. ATIVAN [Concomitant]
     Dosage: 0.5 MG, PRN
  3. CLARITIN [Concomitant]
     Dosage: 10 MG, QD
  4. ASPIRIN [Concomitant]
     Dosage: 81 MG, QD
  5. SINGULAIR [Concomitant]
     Dosage: 10 MG, QD
     Route: 048
  6. YASMIN [Suspect]
     Dosage: UNK
  7. LORTAB [Concomitant]
     Dosage: 7.5, PRN
     Route: 048
  8. PREDNISONE [Concomitant]
     Dosage: 60 MG, PRN
  9. XOPENEX [Concomitant]
     Dosage: 1.25, PRN
  10. VERAPAMIL [Concomitant]
     Dosage: 120 MG, QD
  11. IMITREX [Concomitant]
     Indication: MIGRAINE
     Dosage: UNK UNK, PRN
  12. ADVAIR DISKUS 100/50 [Concomitant]
     Dosage: UNK UNK, BID
  13. AMOXICILLIN [Concomitant]
  14. TOPAMAX [Concomitant]
  15. SURFAK [Concomitant]
     Dosage: 240 MG, QD

REACTIONS (2)
  - PULMONARY EMBOLISM [None]
  - CHOLECYSTECTOMY [None]
